FAERS Safety Report 8797669 (Version 1)
Quarter: 2012Q4

REPORT INFORMATION
  Report Type: Report from Study
  Country: HU (occurrence: HU)
  Receive Date: 20120919
  Receipt Date: 20120919
  Transmission Date: 20130627
  Serious: Yes (Other)
  Sender: FDA-Public Use
  Company Number: HU-ROCHE-1124271

PATIENT
  Age: 82 Year
  Sex: Female

DRUGS (3)
  1. XELODA [Suspect]
     Indication: COLORECTAL CANCER
     Route: 048
     Dates: start: 20081120, end: 200905
  2. XELODA [Suspect]
     Indication: METASTASES TO LUNG
  3. XELODA [Suspect]
     Indication: BREAST OPERATION

REACTIONS (1)
  - Metastases to lung [Unknown]
